FAERS Safety Report 9209739 (Version 1)
Quarter: 2013Q1

REPORT INFORMATION
  Report Type: Spontaneous
  Country: US (occurrence: None)
  Receive Date: 20120820
  Receipt Date: 20120820
  Transmission Date: 20140127
  Serious: No
  Sender: FDA-Public Use
  Company Number: 1000030118

PATIENT
  Age: 45 Year
  Sex: Male

DRUGS (3)
  1. VIIBRYD [Suspect]
     Indication: DEPRESSION
     Route: 048
     Dates: start: 201204, end: 201204
  2. VIIBRYD [Suspect]
     Indication: FIBROMYALGIA
     Route: 048
     Dates: start: 201204, end: 201204
  3. TRAZODONE (TRAZODONE) (TRAZODONE) [Concomitant]

REACTIONS (2)
  - Insomnia [None]
  - Panic attack [None]
